FAERS Safety Report 4433230-3 (Version None)
Quarter: 2004Q3

REPORT INFORMATION
  Report Type: 
  Country: None (occurrence: None)
  Receive Date: 20040823
  Receipt Date: 20040809
  Transmission Date: 20050211
  Serious: No
  Sender: FDA-Public Use
  Company Number: A01200402349

PATIENT
  Age: 70 Year
  Sex: Male

DRUGS (4)
  1. ARIXTRA [Suspect]
     Indication: SURGERY
     Dosage: 2.5 MG ONCE SUBCUTANEOUS
     Route: 058
  2. ARIXTRA [Suspect]
     Indication: THROMBOSIS PROPHYLAXIS
     Dosage: 2.5 MG ONCE SUBCUTANEOUS
     Route: 058
  3. MORPHINE [Concomitant]
  4. ANAESTHETIC [Concomitant]

REACTIONS (2)
  - BODY TEMPERATURE INCREASED [None]
  - CHILLS [None]
